FAERS Safety Report 12073435 (Version 1)
Quarter: 2016Q1

REPORT INFORMATION
  Report Type: Spontaneous
  Country: IE (occurrence: IE)
  Receive Date: 20160212
  Receipt Date: 20160212
  Transmission Date: 20160526
  Serious: Yes (Other)
  Sender: FDA-Public Use
  Company Number: IE-SUN PHARMACEUTICAL INDUSTRIES LTD-2016R1-111564

PATIENT
  Age: 4 Year
  Sex: Male

DRUGS (3)
  1. CLOBETASONE BUTYRATE [Concomitant]
     Active Substance: CLOBETASONE BUTYRATE
     Indication: DERMATITIS ATOPIC
     Dosage: UNK, BID
     Route: 061
  2. ACICLOVIR [Suspect]
     Active Substance: ACYCLOVIR
     Indication: ECZEMA HERPETICUM
     Dosage: 10 MG/KG, QID
     Route: 048
  3. FLUCLOXACILLIN [Concomitant]
     Active Substance: FLUCLOXACILLIN
     Indication: DERMATITIS ATOPIC
     Dosage: 125 MG, QID
     Route: 048

REACTIONS (1)
  - Lichen planus [Recovered/Resolved]
